FAERS Safety Report 9012900 (Version 1)
Quarter: 2013Q1

REPORT INFORMATION
  Report Type: Spontaneous
  Country: US (occurrence: US)
  Receive Date: 20130114
  Receipt Date: 20130114
  Transmission Date: 20140127
  Serious: Yes (Other)
  Sender: FDA-Public Use
  Company Number: US-FRI-1000041546

PATIENT
  Sex: Female

DRUGS (11)
  1. ESCITALOPRAM [Suspect]
     Dosage: 10 MG
     Route: 048
     Dates: start: 2012, end: 20121220
  2. ESCITALOPRAM [Suspect]
     Dosage: 10 MG
     Route: 048
     Dates: start: 20130107
  3. EVISTA [Suspect]
     Dates: start: 20121220, end: 20130107
  4. SYNTHROID [Concomitant]
     Indication: THYROID DISORDER
  5. CELEBREX [Concomitant]
  6. REMICADE [Concomitant]
     Indication: AUTOIMMUNE DISORDER
  7. SULFASALAZINE [Concomitant]
  8. SIMVASTATIN [Concomitant]
  9. DIOVAN [Concomitant]
     Indication: HYPERTENSION
  10. TOPROL [Concomitant]
     Indication: HYPERTENSION
  11. HYDROCHLOROTHIAZIDE [Concomitant]
     Indication: HYPERTENSION

REACTIONS (9)
  - Atypical pneumonia [Recovering/Resolving]
  - Wrong drug administered [Recovered/Resolved]
  - Paraesthesia [Recovered/Resolved]
  - Dizziness [Not Recovered/Not Resolved]
  - Headache [Not Recovered/Not Resolved]
  - Crying [Recovered/Resolved]
  - Anxiety [Recovered/Resolved]
  - Gastritis [Not Recovered/Not Resolved]
  - Gait disturbance [Not Recovered/Not Resolved]
